FAERS Safety Report 6481564-3 (Version None)
Quarter: 2009Q4

REPORT INFORMATION
  Report Type: 
  Country: None (occurrence: None)
  Receive Date: 20091123
  Receipt Date: 20090806
  Transmission Date: 20100525
  Serious: No
  Sender: FDA-Public Use
  Company Number: 8046214

PATIENT
  Age: 39 Year
  Sex: Female
  Weight: 102 kg

DRUGS (9)
  1. CIMZIA [Suspect]
     Indication: CROHN'S DISEASE
     Dates: start: 20090209
  2. DONNATAL [Concomitant]
  3. NEXIUM [Concomitant]
  4. LEVORA 0.15/30-28 [Concomitant]
  5. ALBUTEROL [Concomitant]
  6. PREDNISONE [Concomitant]
  7. HYDRALAZINE HCL [Concomitant]
  8. VICODIN [Concomitant]
  9. TYLENOL (CAPLET) [Concomitant]

REACTIONS (9)
  - ASTHENIA [None]
  - BLOOD POTASSIUM DECREASED [None]
  - CHILLS [None]
  - DIARRHOEA [None]
  - MALAISE [None]
  - PYREXIA [None]
  - RASH PAPULAR [None]
  - SECRETION DISCHARGE [None]
  - URINARY TRACT INFECTION [None]
